FAERS Safety Report 9633894 (Version 1)
Quarter: 2013Q4

REPORT INFORMATION
  Report Type: Spontaneous
  Country: CA (occurrence: CA)
  Receive Date: 20131021
  Receipt Date: 20131021
  Transmission Date: 20140711
  Serious: Yes (Hospitalization)
  Sender: FDA-Public Use
  Company Number: CA-IPSEN BIOPHARMACEUTICALS, INC.-2013-4598

PATIENT
  Age: 94 Year
  Sex: Male

DRUGS (1)
  1. SOMATULINE AUTOGEL [Suspect]
     Indication: METASTATIC CARCINOID TUMOUR
     Route: 058
     Dates: start: 20091210

REACTIONS (2)
  - Hip fracture [Unknown]
  - Fall [Unknown]
